FAERS Safety Report 9262324 (Version 1)
Quarter: 2013Q2

REPORT INFORMATION
  Report Type: Spontaneous
  Country: US (occurrence: None)
  Receive Date: 20130425
  Receipt Date: 20130425
  Transmission Date: 20140414
  Serious: No
  Sender: FDA-Public Use
  Company Number: None

PATIENT
  Age: 76 Year
  Sex: Male

DRUGS (1)
  1. STIVARGA 40MG BAYER [Suspect]
     Indication: RECTAL CANCER
     Route: 048

REACTIONS (4)
  - Nausea [None]
  - Abdominal distension [None]
  - Back pain [None]
  - Rash [None]
